FAERS Safety Report 11340412 (Version 1)
Quarter: 2015Q3

REPORT INFORMATION
  Report Type: Spontaneous
  Country: US (occurrence: US)
  Receive Date: 20150805
  Receipt Date: 20150805
  Transmission Date: 20151125
  Serious: No
  Sender: FDA-Public Use
  Company Number: US-BAYER-2015-379038

PATIENT
  Sex: Male

DRUGS (1)
  1. FINACEA [Suspect]
     Active Substance: AZELAIC ACID
     Indication: ACNE
     Dosage: UNK
     Dates: start: 2012

REACTIONS (2)
  - Product use issue [Not Recovered/Not Resolved]
  - Incorrect product storage [Not Recovered/Not Resolved]
